FAERS Safety Report 22779192 (Version 8)
Quarter: 2025Q2

REPORT INFORMATION
  Report Type: Spontaneous
  Country: US (occurrence: US)
  Receive Date: 20230802
  Receipt Date: 20250528
  Transmission Date: 20250717
  Serious: No
  Sender: PFIZER
  Company Number: US-PFIZER INC-PV202300117148

PATIENT
  Age: 73 Year
  Sex: Female

DRUGS (5)
  1. MEKTOVI [Suspect]
     Active Substance: BINIMETINIB
     Indication: Malignant melanoma
     Dosage: 45 MG, DAILY (TAKE 3 TABLETS, WITH OR WITHOUT FOOD)
     Route: 048
     Dates: start: 20230620
  2. MEKTOVI [Suspect]
     Active Substance: BINIMETINIB
     Indication: Metastases to central nervous system
     Dosage: 30 MG, 1X/DAY (TAKE 2 TABLETS)
     Route: 048
  3. MEKTOVI [Suspect]
     Active Substance: BINIMETINIB
     Dosage: 30 MG, 2X/DAY (30 MG (2 X 15MG TABLETS, BID)
  4. BRAFTOVI [Suspect]
     Active Substance: ENCORAFENIB
     Indication: Malignant melanoma
     Dosage: 450 MG, DAILY (TAKE 6 TABLETS, WITH OR WITHOUT FOOD)
     Route: 048
     Dates: start: 20230620
  5. BRAFTOVI [Suspect]
     Active Substance: ENCORAFENIB
     Indication: Metastases to central nervous system
     Dosage: 375 MG, 1X/DAY (TAKE 5 TABLETS)
     Route: 048

REACTIONS (3)
  - Pyrexia [Not Recovered/Not Resolved]
  - Off label use [Unknown]
  - Nasopharyngitis [Unknown]

NARRATIVE: CASE EVENT DATE: 20230101
